FAERS Safety Report 10198606 (Version 1)
Quarter: 2014Q2

REPORT INFORMATION
  Report Type: Spontaneous
  Country: US (occurrence: None)
  Receive Date: 20140523
  Receipt Date: 20140523
  Transmission Date: 20141212
  Serious: Yes (Disabling)
  Sender: FDA-Public Use
  Company Number: None

PATIENT
  Age: 63 Year
  Sex: Male
  Weight: 92.99 kg

DRUGS (3)
  1. DULOXETINE [Suspect]
     Indication: INTERVERTEBRAL DISC PROTRUSION
     Dosage: 1 PILL
     Route: 048
     Dates: start: 20140126, end: 20140522
  2. DULOXETINE [Suspect]
     Indication: BACK PAIN
     Dosage: 1 PILL
     Route: 048
     Dates: start: 20140126, end: 20140522
  3. DULOXETINE [Suspect]
     Indication: PROCEDURAL PAIN
     Dosage: 1 PILL
     Route: 048
     Dates: start: 20140126, end: 20140522

REACTIONS (2)
  - Constipation [None]
  - Product substitution issue [None]
